FAERS Safety Report 6004067-9 (Version None)
Quarter: 2008Q4

REPORT INFORMATION
  Report Type: 
  Country: None (occurrence: None)
  Receive Date: 20081216
  Receipt Date: 20081211
  Transmission Date: 20090506
  Serious: Yes (Death, Life-Threatening, Hospitalization)
  Sender: FDA-Public Use
  Company Number: B0550188A

PATIENT
  Age: 53 Year
  Sex: Male

DRUGS (2)
  1. ARIXTRA [Suspect]
     Indication: CARDIAC FAILURE
     Route: 065
     Dates: start: 20081201, end: 20081201
  2. COUMADIN [Concomitant]
     Indication: AORTIC STENOSIS

REACTIONS (3)
  - DEATH [None]
  - HAEMORRHAGE INTRACRANIAL [None]
  - HEADACHE [None]
